FAERS Safety Report 7303892-1 (Version None)
Quarter: 2011Q1

REPORT INFORMATION
  Report Type: 
  Country: None (occurrence: None)
  Receive Date: 20110221
  Receipt Date: 20110215
  Transmission Date: 20110831
  Serious: Yes (Other)
  Sender: FDA-Public Use
  Company Number: B0700787A

PATIENT
  Age: 7 Year

DRUGS (1)
  1. RELENZA [Suspect]
     Indication: INFLUENZA
     Route: 055
     Dates: start: 20110209

REACTIONS (4)
  - DYSGEUSIA [None]
  - HALLUCINATION [None]
  - CRYING [None]
  - ABDOMINAL PAIN [None]
